FAERS Safety Report 10357951 (Version 1)
Quarter: 2014Q3

REPORT INFORMATION
  Report Type: Spontaneous
  Country: US (occurrence: US)
  Receive Date: 20140801
  Receipt Date: 20140801
  Transmission Date: 20150326
  Serious: Yes (Other)
  Sender: FDA-Public Use
  Company Number: US-MERCK-1407USA013451

PATIENT
  Age: 48 Year
  Sex: Female

DRUGS (2)
  1. HEXADROL [Suspect]
     Active Substance: DEXAMETHASONE
     Dosage: TAPERING DOSES WITH TOTAL CUMULATIVE DOSE OF 532 MG
  2. HEXADROL [Suspect]
     Active Substance: DEXAMETHASONE
     Indication: SPINAL CORD INJURY
     Dosage: 130 MG IN THE FIRST 48 HOURS
     Route: 048

REACTIONS (2)
  - Bone infarction [Unknown]
  - Osteonecrosis [Unknown]
